FAERS Safety Report 9124226 (Version 1)
Quarter: 2013Q1

REPORT INFORMATION
  Report Type: Spontaneous
  Country: GB (occurrence: GB)
  Receive Date: 20130227
  Receipt Date: 20130227
  Transmission Date: 20140127
  Serious: Yes (Other)
  Sender: FDA-Public Use
  Company Number: GB-TEVA-388182ISR

PATIENT
  Age: 11 Year
  Sex: Male
  Weight: 35 kg

DRUGS (1)
  1. VALPROIC ACID [Suspect]
     Indication: EPILEPSY
     Dosage: 600 MILLIGRAM DAILY;
     Route: 048
     Dates: start: 201209, end: 201301

REACTIONS (3)
  - Suicidal ideation [Recovering/Resolving]
  - Mood altered [Recovering/Resolving]
  - Irritability [Recovering/Resolving]
